FAERS Safety Report 26213032 (Version 1)
Quarter: 2025Q4

REPORT INFORMATION
  Report Type: Spontaneous
  Country: US (occurrence: US)
  Receive Date: 20251230
  Receipt Date: 20251230
  Transmission Date: 20260117
  Serious: Yes (Death, Other)
  Sender: AMGEN
  Company Number: US-AMGEN-USASP2025253645

PATIENT
  Age: 64 Year
  Sex: Male

DRUGS (2)
  1. RITUXIMAB [Suspect]
     Active Substance: RITUXIMAB
     Indication: Microscopic polyangiitis
     Dosage: UNK
     Route: 065
  2. METHYLPREDNISOLONE [Concomitant]
     Active Substance: METHYLPREDNISOLONE
     Dosage: UNK, (HIGH DOSE)

REACTIONS (5)
  - Intraventricular haemorrhage [Fatal]
  - Haemorrhagic transformation stroke [Unknown]
  - Atrial fibrillation [Unknown]
  - Acute myocardial infarction [Unknown]
  - Haematuria [Unknown]
